FAERS Safety Report 8823536 (Version 1)
Quarter: 2012Q4

REPORT INFORMATION
  Report Type: 
  Country: US (occurrence: US)
  Receive Date: 20121003
  Receipt Date: 20121003
  Transmission Date: 20130627
  Serious: No
  Sender: FDA-Public Use
  Company Number: US-TEVA-362391USA

PATIENT
  Sex: Female

DRUGS (4)
  1. AZILECT [Suspect]
     Indication: PARKINSON^S DISEASE
     Route: 048
  2. GUAFENESIN WITH DEXTROMETHORPHAN [Concomitant]
     Indication: COUGH
     Route: 048
     Dates: start: 20120928, end: 20120928
  3. SINEMET [Concomitant]
     Indication: PARKINSON^S DISEASE
     Route: 048
  4. REQUIP [Concomitant]
     Route: 048

REACTIONS (2)
  - Fatigue [Unknown]
  - Cough [Unknown]
